FAERS Safety Report 23451360 (Version 1)
Quarter: 2024Q1

REPORT INFORMATION
  Report Type: Spontaneous
  Country: US (occurrence: None)
  Receive Date: 20240126
  Receipt Date: 20240126
  Transmission Date: 20240409
  Serious: Yes (Disabling)
  Sender: FDA-Public Use
  Company Number: None

PATIENT
  Age: 85 Year
  Sex: Male
  Weight: 59.87 kg

DRUGS (7)
  1. JARDIANCE [Suspect]
     Active Substance: EMPAGLIFLOZIN
     Indication: Chronic kidney disease
     Dosage: OTHER QUANTITY : 1 PILL;?FREQUENCY : DAILY;?
     Route: 048
  2. FEBUXOSTATD [Concomitant]
  3. LOSARTAN/HYDROCHLORIDE [Concomitant]
  4. PRESERVATION [Concomitant]
  5. VITAMIN D [Concomitant]
  6. FOLIC ACID [Concomitant]
     Active Substance: FOLIC ACID
  7. CENTRUM MULTI VITAMIN [Concomitant]

REACTIONS (2)
  - Arthralgia [None]
  - Arthralgia [None]
